FAERS Safety Report 10241913 (Version 1)
Quarter: 2014Q1

REPORT INFORMATION
  Report Type: Spontaneous
  Country: US (occurrence: None)
  Receive Date: 20140306
  Receipt Date: 20140306
  Transmission Date: 20141002
  Serious: Yes (Hospitalization, Other)
  Sender: FDA-Public Use
  Company Number: 163-21880-13112866

PATIENT
  Age: 74 Year
  Sex: Male

DRUGS (6)
  1. REVLIMID (LENALIDOMIDE) (15 MILLIGRAM, CAPSULES) [Suspect]
     Indication: PLASMA CELL MYELOMA
     Route: 048
     Dates: start: 201307
  2. PREDNISONE (TABLETS) [Concomitant]
  3. ZYTIGA (ABIRATERONE ACETATE) (UNKNOWN) [Concomitant]
  4. AMLODIPINE (TABLETS) [Concomitant]
  5. CRESTOR (ROUVASTATIN) (TABLETS) [Concomitant]
  6. TRIAMTERENE AND HYDROCHLOROTHIAZIDE (DYAZIDE) (TABLETS) [Concomitant]

REACTIONS (2)
  - Pneumonia [None]
  - Platelet count decreased [None]
